FAERS Safety Report 5019120-6 (Version None)
Quarter: 2006Q2

REPORT INFORMATION
  Report Type: 
  Country: None (occurrence: None)
  Receive Date: 20060606
  Receipt Date: 20060526
  Transmission Date: 20061013
  Serious: Yes (Hospitalization)
  Sender: FDA-Public Use
  Company Number: GB-GLAXOSMITHKLINE-B0425709A

PATIENT
  Age: 62 Year
  Sex: Female

DRUGS (2)
  1. NIQUITIN CQ 21MG [Suspect]
     Dosage: 21MG PER DAY
     Route: 062
     Dates: start: 20060506, end: 20060507
  2. DICLOFENAC POTASSIUM [Suspect]
     Indication: PAIN
     Dosage: 50MG THREE TIMES PER DAY
     Route: 048
     Dates: start: 20060506, end: 20060507

REACTIONS (1)
  - CONVULSION [None]
